FAERS Safety Report 5119299-1 (Version None)
Quarter: 2006Q4

REPORT INFORMATION
  Report Type: 
  Country: None (occurrence: None)
  Receive Date: 20061003
  Receipt Date: 20060830
  Transmission Date: 20070319
  Serious: Yes (Hospitalization)
  Sender: FDA-Public Use
  Company Number: JP-SP-2006-02418

PATIENT
  Age: 80 Year
  Sex: Female

DRUGS (2)
  1. IMMUCYST [Suspect]
     Indication: CARCINOMA IN SITU OF BLADDER
     Route: 065
     Dates: start: 20060701, end: 20060801
  2. IMMUCYST [Suspect]
     Route: 065
     Dates: start: 20060701, end: 20060801

REACTIONS (2)
  - ARTHRALGIA [None]
  - HYPONATRAEMIA [None]
